FAERS Safety Report 7954005-4 (Version None)
Quarter: 2011Q4

REPORT INFORMATION
  Report Type: 
  Country: None (occurrence: None)
  Receive Date: 20111202
  Receipt Date: 20111202
  Transmission Date: 20120403
  Serious: Yes (Other)
  Sender: FDA-Public Use
  Company Number: None

PATIENT
  Age: 33 Year
  Sex: Female
  Weight: 79.832 kg

DRUGS (1)
  1. MIRENA [Suspect]
     Indication: CONTRACEPTION
     Dosage: 1 IUD
     Route: 015
     Dates: start: 20111118, end: 20111202

REACTIONS (11)
  - HEADACHE [None]
  - DIZZINESS [None]
  - EYELID OEDEMA [None]
  - DEPRESSION [None]
  - ANGER [None]
  - PRESYNCOPE [None]
  - RASH [None]
  - LIP SWELLING [None]
  - DISTURBANCE IN ATTENTION [None]
  - SUICIDAL IDEATION [None]
  - OCULAR HYPERAEMIA [None]
